FAERS Safety Report 9493257 (Version 2)
Quarter: 2013Q3

REPORT INFORMATION
  Report Type: Spontaneous
  Country: AU (occurrence: AU)
  Receive Date: 20130902
  Receipt Date: 20130912
  Transmission Date: 20140515
  Serious: Yes (Other)
  Sender: FDA-Public Use
  Company Number: PHHY2013AU094767

PATIENT
  Sex: Female

DRUGS (10)
  1. ACLASTA [Suspect]
     Dosage: 5 MG / 100 ML (FEW MONTHS AGO)
     Route: 042
  2. VITAMIN D [Concomitant]
     Dosage: UNK UKN, UNK
  3. CALCIUM [Concomitant]
     Dosage: UNK
  4. FISH OIL [Concomitant]
     Dosage: UNK
  5. OROXINE [Concomitant]
     Indication: THYROIDECTOMY
     Dosage: UNK UKN, UNK
  6. CHOLESTEROL [Concomitant]
     Dosage: UNK
  7. NEXIUM [Concomitant]
     Dosage: UNK UKN, UNK
  8. CELEBREX [Concomitant]
     Dosage: UNK
  9. PANADEINE FORTE [Concomitant]
     Dosage: UNK
  10. ANTIHYPERTENSIVE DRUGS [Concomitant]
     Indication: BLOOD PRESSURE ABNORMAL

REACTIONS (2)
  - Ankle fracture [Unknown]
  - Ligament sprain [Unknown]
